FAERS Safety Report 15471871 (Version 1)
Quarter: 2018Q4

REPORT INFORMATION
  Report Type: Report from Study
  Country: GB (occurrence: GB)
  Receive Date: 20181008
  Receipt Date: 20181008
  Transmission Date: 20190205
  Serious: Yes (Death, Hospitalization, Other)
  Sender: FDA-Public Use
  Company Number: GB-ROCHE-2191241

PATIENT

DRUGS (6)
  1. CISPLATIN. [Suspect]
     Active Substance: CISPLATIN
     Indication: OESOPHAGEAL CARCINOMA
     Route: 065
  2. CETUXIMAB. [Suspect]
     Active Substance: CETUXIMAB
     Indication: OESOPHAGEAL CARCINOMA
     Route: 065
  3. OXALIPLATIN. [Suspect]
     Active Substance: OXALIPLATIN
     Indication: OESOPHAGEAL CARCINOMA
     Route: 065
  4. EPIRUBICIN [Suspect]
     Active Substance: EPIRUBICIN
     Indication: OESOPHAGEAL CARCINOMA
     Route: 065
  5. 5-FLUOROURACIL [Suspect]
     Active Substance: FLUOROURACIL
     Indication: OESOPHAGEAL CARCINOMA
     Route: 065
  6. CAPECITABINE. [Suspect]
     Active Substance: CAPECITABINE
     Indication: OESOPHAGEAL CARCINOMA
     Route: 065

REACTIONS (20)
  - Cardiac disorder [Unknown]
  - Oesophagitis [Unknown]
  - Embolism venous [Unknown]
  - Rash [Unknown]
  - Infarction [Unknown]
  - Pneumonitis [Unknown]
  - Pulmonary fibrosis [Unknown]
  - Ischaemia [Unknown]
  - Thrombocytopenia [Unknown]
  - Palmar-plantar erythrodysaesthesia syndrome [Unknown]
  - Arrhythmia [Unknown]
  - Gastrointestinal ulcer [Unknown]
  - Vomiting [Unknown]
  - Oesophageal stenosis [Unknown]
  - Fistula [Unknown]
  - Lethargy [Unknown]
  - Nausea [Unknown]
  - Constipation [Unknown]
  - Radiation pneumonitis [Fatal]
  - Diarrhoea [Unknown]
